FAERS Safety Report 4395104-6 (Version None)
Quarter: 2004Q3

REPORT INFORMATION
  Report Type: 
  Country: None (occurrence: None)
  Receive Date: 20040706
  Receipt Date: 20040621
  Transmission Date: 20050211
  Serious: Yes (Hospitalization)
  Sender: FDA-Public Use
  Company Number: 04P-167-0264448-00

PATIENT
  Age: 69 Year
  Sex: Male

DRUGS (5)
  1. WARFARIN SODIUM [Suspect]
     Indication: ANTICOAGULANT THERAPY
     Dosage: PER ORAL
     Route: 048
  2. CRANBERRY JUICE [Suspect]
     Indication: URINARY TRACT INFECTION
     Dosage: PER ORAL
     Route: 048
  3. DIGOXIN [Concomitant]
  4. ACETAMINOPHEN [Concomitant]
  5. CODEINE [Concomitant]

REACTIONS (7)
  - ANASTOMOTIC HAEMORRHAGE [None]
  - CATHETER SITE HAEMORRHAGE [None]
  - DRUG INTERACTION [None]
  - FOOD INTERACTION [None]
  - HAEMATURIA [None]
  - INTERNATIONAL NORMALISED RATIO INCREASED [None]
  - RECTAL HAEMORRHAGE [None]
